FAERS Safety Report 6390570-9 (Version None)
Quarter: 2009Q4

REPORT INFORMATION
  Report Type: 
  Country: None (occurrence: None)
  Receive Date: 20091006
  Receipt Date: 20090922
  Transmission Date: 20100525
  Serious: Yes (Other)
  Sender: FDA-Public Use
  Company Number: US-SOLVAY-00209005522

PATIENT
  Age: 53 Year
  Sex: Male
  Weight: 91 kg

DRUGS (1)
  1. ANDROGEL [Suspect]
     Indication: BLOOD TESTOSTERONE DECREASED
     Dosage: DAILY DOSE: 5 GRAM(S), AS USED : 1 PACKET
     Route: 062
     Dates: start: 20060101

REACTIONS (2)
  - DYSPNOEA [None]
  - FLUID RETENTION [None]
